FAERS Safety Report 12944216 (Version 1)
Quarter: 2016Q4

REPORT INFORMATION
  Report Type: Spontaneous
  Country: JP (occurrence: JP)
  Receive Date: 20161115
  Receipt Date: 20161115
  Transmission Date: 20170207
  Serious: Yes (Hospitalization)
  Sender: FDA-Public Use
  Company Number: JP-BAYER-2016-218154

PATIENT
  Age: 80 Year
  Sex: Male

DRUGS (2)
  1. XOFIGO [Suspect]
     Active Substance: RADIUM RA-223 DICHLORIDE
     Indication: HORMONE-REFRACTORY PROSTATE CANCER
     Dosage: 1 DF, UNK
     Route: 042
     Dates: start: 20161021
  2. ENZALUTAMIDE [Suspect]
     Active Substance: ENZALUTAMIDE
     Dosage: UNK
     Route: 048

REACTIONS (3)
  - Nausea [Recovered/Resolved]
  - Decreased appetite [None]
  - Malaise [Recovering/Resolving]

NARRATIVE: CASE EVENT DATE: 201610
